FAERS Safety Report 13515341 (Version 1)
Quarter: 2017Q2

REPORT INFORMATION
  Report Type: Spontaneous
  Country: US (occurrence: US)
  Receive Date: 20170504
  Receipt Date: 20170504
  Transmission Date: 20170830
  Serious: Yes (Hospitalization, Other)
  Sender: FDA-Public Use
  Company Number: US-PFIZER INC-2017194389

PATIENT
  Age: 13 Year
  Sex: Male
  Weight: 60 kg

DRUGS (2)
  1. GENOTROPIN [Suspect]
     Active Substance: SOMATROPIN
     Indication: GROWTH HORMONE DEFICIENCY
     Dosage: 1.8MG, 1X/DAY, 6X/WEEK
     Route: 058
     Dates: start: 2013
  2. GENOTROPIN [Suspect]
     Active Substance: SOMATROPIN
     Dosage: 1.6MG, 1X/DAY, 6X/WEEK
     Route: 058
     Dates: start: 20170428

REACTIONS (2)
  - Testicular torsion [Unknown]
  - Insulin-like growth factor increased [Unknown]
